FAERS Safety Report 5721346-0 (Version None)
Quarter: 2008Q2

REPORT INFORMATION
  Report Type: 
  Country: None (occurrence: None)
  Receive Date: 20080429
  Receipt Date: 20080421
  Transmission Date: 20081010
  Serious: Yes (Other)
  Sender: FDA-Public Use
  Company Number: US-MERCK-0707USA02305

PATIENT
  Age: 60 Year
  Sex: Female
  Weight: 53 kg

DRUGS (15)
  1. FOSAMAX [Suspect]
     Indication: OSTEOPENIA
     Route: 048
     Dates: start: 20020729, end: 20040601
  2. FOSAMAX [Suspect]
     Route: 048
     Dates: start: 20020101
  3. FOSAMAX [Suspect]
     Indication: OSTEOPOROSIS
     Route: 048
     Dates: start: 20020729, end: 20040601
  4. FOSAMAX [Suspect]
     Route: 048
     Dates: start: 20020101
  5. ACIPHEX [Concomitant]
     Indication: HEADACHE
     Route: 048
     Dates: start: 20000101
  6. CALCIUM (UNSPECIFIED) [Concomitant]
     Route: 065
  7. ASPIRIN [Concomitant]
     Route: 065
  8. ASCORBIC ACID [Concomitant]
     Route: 065
  9. VITAMIN E [Concomitant]
     Route: 065
  10. VITAMINS (UNSPECIFIED) [Concomitant]
     Route: 065
  11. CELEBREX [Concomitant]
     Route: 065
  12. PAXIL [Concomitant]
     Route: 065
  13. SYNTHROID [Concomitant]
     Route: 065
     Dates: start: 20000101
  14. INDERAL [Concomitant]
     Route: 065
     Dates: start: 19950101
  15. ESTROGENS (UNSPECIFIED) [Concomitant]
     Route: 065

REACTIONS (7)
  - ANXIETY DISORDER [None]
  - ARTHROPATHY [None]
  - CARPAL TUNNEL SYNDROME [None]
  - DIARRHOEA [None]
  - GASTROINTESTINAL DISORDER [None]
  - OSTEOMYELITIS ACUTE [None]
  - OSTEONECROSIS [None]
